FAERS Safety Report 9518813 (Version 1)
Quarter: 2013Q3

REPORT INFORMATION
  Report Type: Spontaneous
  Country: IT (occurrence: IT)
  Receive Date: 20130912
  Receipt Date: 20130912
  Transmission Date: 20140515
  Serious: Yes (Hospitalization)
  Sender: FDA-Public Use
  Company Number: IT-BAYER-2013-109701

PATIENT
  Age: 95 Year
  Sex: Male

DRUGS (7)
  1. CARDIOASPIRIN [Suspect]
     Indication: THROMBOSIS PROPHYLAXIS
     Dosage: DAILY DOSE 100 MG
     Route: 048
     Dates: start: 20130101, end: 20130613
  2. CARDIOASPIRIN [Suspect]
     Indication: THROMBOSIS PROPHYLAXIS
     Dosage: UNK
     Route: 048
  3. CLEXANE [Suspect]
     Indication: THROMBOSIS PROPHYLAXIS
     Dosage: DAILY DOSE 1 DF
     Route: 058
     Dates: start: 20130401, end: 20130613
  4. SERTRALINE [Concomitant]
     Dosage: DAILY DOSE 50 MG
     Route: 048
  5. LASIX [Concomitant]
     Dosage: UNK
     Route: 048
  6. TRIATEC [Concomitant]
     Dosage: UNK
     Route: 048
  7. DILATREND [Concomitant]
     Dosage: UNK
     Route: 048

REACTIONS (1)
  - Thrombocytopenia [Unknown]
